FAERS Safety Report 25853642 (Version 1)
Quarter: 2025Q3

REPORT INFORMATION
  Report Type: Spontaneous
  Country: CA (occurrence: CA)
  Receive Date: 20250926
  Receipt Date: 20250926
  Transmission Date: 20251021
  Serious: Yes (Congenital Anomaly)
  Sender: ROCHE
  Company Number: CA-ROCHE-10000392418

PATIENT

DRUGS (2)
  1. ACTEMRA [Suspect]
     Active Substance: TOCILIZUMAB
     Indication: Product used for unknown indication
     Route: 064
  2. RITUXIMAB [Suspect]
     Active Substance: RITUXIMAB
     Indication: Product used for unknown indication
     Dosage: 2000 MG, 1000 MG
     Route: 064

REACTIONS (2)
  - Congenital anomaly [Unknown]
  - Foetal exposure during pregnancy [Unknown]
